FAERS Safety Report 9530754 (Version 1)
Quarter: 2013Q3

REPORT INFORMATION
  Report Type: Spontaneous
  Country: US (occurrence: None)
  Receive Date: 20130916
  Receipt Date: 20130916
  Transmission Date: 20140515
  Serious: Yes (Other)
  Sender: FDA-Public Use
  Company Number: None

PATIENT
  Age: 22 Year
  Sex: Female
  Weight: 55.79 kg

DRUGS (1)
  1. DEFINITY [Suspect]
     Indication: SCAN WITH CONTRAST
     Dates: start: 20130913, end: 20130913

REACTIONS (3)
  - Flushing [None]
  - Dyspnoea [None]
  - Nausea [None]
